FAERS Safety Report 9973298 (Version 1)
Quarter: 2014Q1

REPORT INFORMATION
  Report Type: Report from Study
  Country: US (occurrence: US)
  Receive Date: 20140306
  Receipt Date: 20140306
  Transmission Date: 20141002
  Serious: No
  Sender: FDA-Public Use
  Company Number: US-ABBVIE-13P-163-1154715-00

PATIENT
  Age: 52 Year
  Sex: Female
  Weight: 134.84 kg

DRUGS (8)
  1. HUMIRA [Suspect]
     Indication: RHEUMATOID ARTHRITIS
     Dates: start: 20130723
  2. PREDNISONE [Concomitant]
     Indication: RHEUMATOID ARTHRITIS
  3. SULFASALAZINE [Concomitant]
     Indication: RHEUMATOID ARTHRITIS
  4. UNKNOWN MEDICATION [Concomitant]
     Indication: RHEUMATOID ARTHRITIS
  5. LISINOPRIL [Concomitant]
     Indication: HYPERTENSION
  6. WARFARIN [Concomitant]
     Indication: THROMBOSIS
  7. IRON [Concomitant]
     Indication: ANAEMIA
  8. FOSAMAX [Concomitant]
     Indication: OSTEOPOROSIS

REACTIONS (3)
  - Headache [Not Recovered/Not Resolved]
  - Back pain [Not Recovered/Not Resolved]
  - No therapeutic response [Not Recovered/Not Resolved]
